FAERS Safety Report 23110945 (Version 3)
Quarter: 2023Q4

REPORT INFORMATION
  Report Type: Report from Study
  Country: CA (occurrence: CA)
  Receive Date: 20231026
  Receipt Date: 20231206
  Transmission Date: 20240110
  Serious: Yes (Other)
  Sender: FDA-Public Use
  Company Number: CA-OTSUKA-2017_012940

PATIENT
  Age: 55 Year
  Sex: Male

DRUGS (3)
  1. TOLVAPTAN [Suspect]
     Active Substance: TOLVAPTAN
     Indication: Congenital cystic kidney disease
     Dosage: 60 MG, QD
     Route: 048
     Dates: start: 20151102
  2. TOLVAPTAN [Suspect]
     Active Substance: TOLVAPTAN
     Dosage: 90 MG, QD
     Route: 048
  3. TOLVAPTAN [Suspect]
     Active Substance: TOLVAPTAN
     Dosage: 120 MG, QD
     Route: 048

REACTIONS (9)
  - End stage renal disease [Not Recovered/Not Resolved]
  - Urinary retention [Recovered/Resolved]
  - Coronary artery disease [Not Recovered/Not Resolved]
  - Haematochezia [Recovered/Resolved]
  - Haemodialysis [Recovering/Resolving]
  - Erectile dysfunction [Recovered/Resolved]
  - Fatigue [Recovered/Resolved]
  - Nocturia [Recovered/Resolved]
  - Polydipsia [Recovered/Resolved]

NARRATIVE: CASE EVENT DATE: 20151102
